FAERS Safety Report 10671065 (Version 1)
Quarter: 2014Q4

REPORT INFORMATION
  Report Type: Spontaneous
  Country: ID (occurrence: None)
  Receive Date: 20141219
  Receipt Date: 20141219
  Transmission Date: 20150529
  Serious: Yes (Hospitalization, Other)
  Sender: FDA-Public Use
  Company Number: 1520311

PATIENT
  Age: 18 Year
  Sex: Male

DRUGS (2)
  1. SERTRALINE [Suspect]
     Active Substance: SERTRALINE HYDROCHLORIDE
     Indication: OBSESSIVE-COMPULSIVE DISORDER
     Dosage: TITRATED TO 150 MG
     Route: 048
  2. LITHIUM [Suspect]
     Active Substance: LITHIUM CARBONATE
     Indication: OBSESSIVE-COMPULSIVE DISORDER
     Dosage: TAPERED TO 600MG
     Route: 048

REACTIONS (4)
  - Headache [None]
  - Condition aggravated [None]
  - Obsessive-compulsive disorder [None]
  - Tremor [None]
